FAERS Safety Report 6314805-3 (Version None)
Quarter: 2009Q3

REPORT INFORMATION
  Report Type: 
  Country: None (occurrence: None)
  Receive Date: 20090817
  Receipt Date: 20090817
  Transmission Date: 20100115
  Serious: Yes (Other)
  Sender: FDA-Public Use
  Company Number: None

PATIENT
  Age: 81 Year
  Sex: Female
  Weight: 86.637 kg

DRUGS (1)
  1. OXYBUTYNIN [Suspect]
     Indication: BLADDER DISORDER
     Dosage: ONE TABLET PERDAY PO
     Route: 048
     Dates: start: 20090722, end: 20090726

REACTIONS (3)
  - DYSURIA [None]
  - PRURITUS [None]
  - PRURITUS GENITAL [None]
